FAERS Safety Report 10617195 (Version 4)
Quarter: 2015Q4

REPORT INFORMATION
  Report Type: Spontaneous
  Country: US (occurrence: US)
  Receive Date: 20141201
  Receipt Date: 20151026
  Transmission Date: 20160304
  Serious: Yes (Disabling, Other)
  Sender: FDA-Public Use
  Company Number: US-BAYER-2014-173893

PATIENT
  Age: 29 Year
  Sex: Female
  Weight: 62.13 kg

DRUGS (3)
  1. FOLIC ACID. [Concomitant]
     Active Substance: FOLIC ACID
  2. PRENATAL VITAMINS [Concomitant]
     Active Substance: VITAMINS
  3. MIRENA [Suspect]
     Active Substance: LEVONORGESTREL
     Indication: CONTRACEPTION
     Dosage: 20 MCG/24HR, CONT
     Route: 015
     Dates: start: 20051116

REACTIONS (14)
  - Ectopic pregnancy with contraceptive device [Recovered/Resolved]
  - Impaired self-care [None]
  - Anxiety [None]
  - Fear of disease [None]
  - Depression [None]
  - Device dislocation [None]
  - Ovarian cyst [None]
  - Injury [None]
  - Emotional distress [None]
  - Anger [None]
  - Drug ineffective [None]
  - Pain [None]
  - Anhedonia [None]
  - Device issue [None]

NARRATIVE: CASE EVENT DATE: 200901
